FAERS Safety Report 16268495 (Version 7)
Quarter: 2019Q4

REPORT INFORMATION
  Report Type: Report from Study
  Country: DE (occurrence: DE)
  Receive Date: 20190503
  Receipt Date: 20191213
  Transmission Date: 20200122
  Serious: Yes (Hospitalization, Other)
  Sender: FDA-Public Use
  Company Number: DE-BRISTOL-MYERS SQUIBB COMPANY-BMS-2019-041021

PATIENT
  Age: 77 Year
  Sex: Female

DRUGS (10)
  1. NIVOLUMAB [Suspect]
     Active Substance: NIVOLUMAB
     Indication: RENAL CELL CARCINOMA
     Dosage: 240 MILLIGRAM, Q3WK
     Route: 042
     Dates: start: 20190415, end: 20190722
  2. PANTOZOL [Concomitant]
     Active Substance: PANTOPRAZOLE SODIUM
     Indication: PROPHYLAXIS
     Dosage: 40 MILLIGRAM
     Route: 065
  3. TOREM [TORASEMIDE] [Concomitant]
     Active Substance: TORSEMIDE
     Indication: CEREBROVASCULAR DISORDER
     Dosage: 20 MILLIGRAM
     Route: 065
  4. VALSACOR [Concomitant]
     Active Substance: VALSARTAN
     Indication: CEREBROVASCULAR DISORDER
     Dosage: 80 MILLIGRAM
     Route: 065
  5. BEROTEC [Concomitant]
     Active Substance: FENOTEROL HYDROBROMIDE
     Indication: LUNG DISORDER
     Dosage: 3X1 HUB (PUFF)
     Route: 065
  6. METOPROLOL. [Concomitant]
     Active Substance: METOPROLOL
     Indication: CEREBROVASCULAR DISORDER
     Dosage: 70 MILLIGRAM
     Route: 065
  7. DIGIMERCK [Concomitant]
     Active Substance: DIGITOXIN
     Indication: CEREBROVASCULAR DISORDER
     Dosage: 0.05 MILLIGRAM
     Route: 065
  8. SPIRIVA [Concomitant]
     Active Substance: TIOTROPIUM BROMIDE MONOHYDRATE
     Indication: LUNG DISORDER
     Dosage: 3X1 PUFF
     Route: 065
  9. LIXIANA [Concomitant]
     Active Substance: EDOXABAN TOSYLATE
     Indication: CEREBROVASCULAR DISORDER
     Dosage: 60 MILLIGRAM
     Route: 065
  10. IPILIMUMAB [Suspect]
     Active Substance: IPILIMUMAB
     Indication: RENAL CELL CARCINOMA
     Dosage: 1 MILLIGRAM/KILOGRAM, Q3WK
     Route: 042
     Dates: start: 20190415, end: 20190617

REACTIONS (6)
  - Pancreatitis [Recovered/Resolved]
  - Abdominal discomfort [Unknown]
  - Metastases to lung [Unknown]
  - Nausea [Unknown]
  - Diarrhoea [Recovered/Resolved]
  - Accidental overdose [Recovered/Resolved]

NARRATIVE: CASE EVENT DATE: 20190415
